FAERS Safety Report 6538741-2 (Version None)
Quarter: 2010Q1

REPORT INFORMATION
  Report Type: 
  Country: None (occurrence: None)
  Receive Date: 20100115
  Receipt Date: 20100105
  Transmission Date: 20100710
  Serious: Yes (Other)
  Sender: FDA-Public Use
  Company Number: GB-RANBAXY-2010RR-30304

PATIENT
  Sex: Female

DRUGS (3)
  1. FLUOXETINE [Suspect]
     Route: 048
  2. CLOZARIL [Suspect]
     Indication: SCHIZOPHRENIA
     Dosage: UNK
     Dates: start: 20040825
  3. HYOSCINE [Concomitant]
     Indication: SALIVARY HYPERSECRETION

REACTIONS (3)
  - CONSTIPATION [None]
  - ILEUS PARALYTIC [None]
  - VOMITING [None]
